FAERS Safety Report 4866190-1 (Version None)
Quarter: 2005Q4

REPORT INFORMATION
  Report Type: 
  Country: None (occurrence: None)
  Receive Date: 20051227
  Receipt Date: 20051216
  Transmission Date: 20060501
  Serious: Yes (Hospitalization)
  Sender: FDA-Public Use
  Company Number: 2005UW18933

PATIENT
  Age: 25877 Day
  Sex: Female
  Weight: 47 kg

DRUGS (1)
  1. IRESSA [Suspect]
     Indication: NON-SMALL CELL LUNG CANCER
     Route: 048
     Dates: start: 20051010, end: 20051106

REACTIONS (2)
  - PNEUMOTHORAX [None]
  - SUBCUTANEOUS EMPHYSEMA [None]
